FAERS Safety Report 12674216 (Version 2)
Quarter: 2016Q3

REPORT INFORMATION
  Report Type: Spontaneous
  Country: US (occurrence: US)
  Receive Date: 20160822
  Receipt Date: 20160915
  Transmission Date: 20161109
  Serious: Yes (Hospitalization, Other)
  Sender: FDA-Public Use
  Company Number: US-GLAXOSMITHKLINE-US2016GSK119336

PATIENT
  Sex: Female

DRUGS (1)
  1. ADVAIR DISKUS [Suspect]
     Active Substance: FLUTICASONE PROPIONATE\SALMETEROL XINAFOATE
     Indication: ASTHMA
     Dosage: 1 PUFF(S), BID
     Dates: start: 1990

REACTIONS (10)
  - Cough [Recovering/Resolving]
  - Stent placement [Unknown]
  - Spinal operation [Unknown]
  - Accident at work [Unknown]
  - Fibromyalgia [Not Recovered/Not Resolved]
  - Drug dose omission [Unknown]
  - Intracranial aneurysm [Not Recovered/Not Resolved]
  - Intentional underdose [Unknown]
  - Intentional product misuse [Unknown]
  - Cerebral endovascular aneurysm repair [Unknown]

NARRATIVE: CASE EVENT DATE: 1990
